FAERS Safety Report 19209760 (Version 1)
Quarter: 2021Q2

REPORT INFORMATION
  Report Type: Spontaneous
  Country: DE (occurrence: DE)
  Receive Date: 20210503
  Receipt Date: 20210503
  Transmission Date: 20210717
  Serious: Yes (Other)
  Sender: FDA-Public Use
  Company Number: DE-AUROBINDO-AUR-APL-2021-017621

PATIENT
  Age: 77 Year
  Sex: Male
  Weight: 78 kg

DRUGS (5)
  1. METFORMIN [Suspect]
     Active Substance: METFORMIN HYDROCHLORIDE
     Indication: PRODUCT USED FOR UNKNOWN INDICATION
     Dosage: 1000 MILLIGRAM, ONCE A DAY
     Route: 065
  2. ROSUVASTATIN. [Interacting]
     Active Substance: ROSUVASTATIN
     Indication: HYPERCHOLESTEROLAEMIA
     Dosage: 5 MILLIGRAM, ONCE A DAY
     Route: 065
     Dates: start: 20201125
  3. XARELTO [Interacting]
     Active Substance: RIVAROXABAN
     Indication: PRODUCT USED FOR UNKNOWN INDICATION
     Dosage: 15 MILLIGRAM, ONCE A DAY
     Route: 065
  4. OZEMPIC [Interacting]
     Active Substance: SEMAGLUTIDE
     Indication: DIABETES MELLITUS
     Dosage: 0.5 MILLIGRAM, EVERY WEEK
     Route: 058
     Dates: start: 20201125, end: 20201220
  5. OZEMPIC [Interacting]
     Active Substance: SEMAGLUTIDE
     Dosage: 0.25 MILLIGRAM, EVERY WEEK
     Route: 058
     Dates: start: 20201220

REACTIONS (1)
  - Atrial fibrillation [Unknown]

NARRATIVE: CASE EVENT DATE: 20201213
